FAERS Safety Report 7285883-2 (Version None)
Quarter: 2011Q1

REPORT INFORMATION
  Report Type: 
  Country: None (occurrence: None)
  Receive Date: 20110210
  Receipt Date: 20110206
  Transmission Date: 20110831
  Serious: Yes (Life-Threatening)
  Sender: FDA-Public Use
  Company Number: DZ-ASTRAZENECA-2011SE06966

PATIENT
  Age: 11744 Day
  Weight: 73 kg

DRUGS (1)
  1. ATACAND [Suspect]
     Indication: HYPERTENSION
     Route: 048
     Dates: start: 20100101, end: 20101101

REACTIONS (2)
  - ASTHMA [None]
  - SINUSITIS [None]
